FAERS Safety Report 7966529-4 (Version None)
Quarter: 2011Q4

REPORT INFORMATION
  Report Type: 
  Country: None (occurrence: None)
  Receive Date: 20111208
  Receipt Date: 20111129
  Transmission Date: 20120403
  Serious: Yes (Other)
  Sender: FDA-Public Use
  Company Number: FR-ASTRAZENECA-2011SE72954

PATIENT

DRUGS (1)
  1. IRESSA [Suspect]
     Route: 048

REACTIONS (2)
  - CONFUSIONAL STATE [None]
  - DEMENTIA [None]
